FAERS Safety Report 16365587 (Version 2)
Quarter: 2022Q2

REPORT INFORMATION
  Report Type: Spontaneous
  Country: NL (occurrence: NL)
  Receive Date: 20190529
  Receipt Date: 20220408
  Transmission Date: 20220720
  Serious: Yes (Other)
  Sender: FDA-Public Use
  Company Number: NL-AUROBINDO-AUR-APL-2019-029583

PATIENT
  Sex: Female
  Weight: 64 kg

DRUGS (4)
  1. PAROXETINE [Suspect]
     Active Substance: PAROXETINE
     Indication: Anxiety
     Dosage: 20 MILLIGRAM, ONCE A DAY,NA VERHOGEN NAAR 20
     Route: 048
  2. PAROXETINE [Suspect]
     Active Substance: PAROXETINE
     Indication: Depression
     Dosage: 30 MILLIGRAM, ONCE A DAY,VERHOOGD NAAR 30MG
     Route: 065
  3. PAROXETINE [Suspect]
     Active Substance: PAROXETINE
     Dosage: 10 MILLIGRAM, ONCE A DAY,BIJ 10MG
     Route: 048
     Dates: start: 20181210
  4. OXAZEPAM [Concomitant]
     Active Substance: OXAZEPAM
     Indication: Product used for unknown indication
     Dosage: UNK
     Route: 065

REACTIONS (9)
  - Suicidal ideation [Recovered/Resolved]
  - Suicide attempt [Recovered/Resolved]
  - Depression [Recovered/Resolved]
  - Panic attack [Recovered/Resolved]
  - Tinnitus [Not Recovered/Not Resolved]
  - Night sweats [Recovered/Resolved]
  - Aggression [Recovered/Resolved]
  - Somnolence [Recovered/Resolved]
  - Restlessness [Recovered/Resolved]
